FAERS Safety Report 7864832-X (Version None)
Quarter: 2011Q4

REPORT INFORMATION
  Report Type: 
  Country: None (occurrence: None)
  Receive Date: 20111028
  Receipt Date: 20100901
  Transmission Date: 20120403
  Serious: No
  Sender: FDA-Public Use
  Company Number: US-GLAXOSMITHKLINE-A0878920A

PATIENT
  Age: 44 Year
  Sex: Female

DRUGS (2)
  1. ADVAIR DISKUS 100/50 [Suspect]
     Indication: ASTHMA
     Dosage: 1PUFF TWICE PER DAY
     Route: 055
     Dates: start: 20100829
  2. LOPRESSOR [Concomitant]

REACTIONS (3)
  - ABDOMINAL DISCOMFORT [None]
  - GASTROINTESTINAL DISORDER [None]
  - DIARRHOEA [None]
